FAERS Safety Report 18975487 (Version 1)
Quarter: 2021Q1

REPORT INFORMATION
  Report Type: Spontaneous
  Country: US (occurrence: US)
  Receive Date: 20210305
  Receipt Date: 20210305
  Transmission Date: 20210420
  Serious: No
  Sender: FDA-Public Use
  Company Number: US-GILEAD-2021-0519233

PATIENT
  Age: 56 Year
  Sex: Male

DRUGS (16)
  1. N?ACETYLCYSTEINE [Concomitant]
     Active Substance: ACETYLCYSTEINE
  2. VITAMINS NOS [Concomitant]
     Active Substance: VITAMINS
  3. ASHWAGANDHA [WITHANIA SOMNIFERA] [Concomitant]
     Active Substance: HERBALS
  4. ATRIPLA [Concomitant]
     Active Substance: EFAVIRENZ\EMTRICITABINE\TENOFOVIR DISOPROXIL FUMARATE
  5. FISH OIL [Concomitant]
     Active Substance: FISH OIL
  6. VALTREX [Concomitant]
     Active Substance: VALACYCLOVIR HYDROCHLORIDE
  7. CLARITIN [CLARITHROMYCIN] [Concomitant]
     Active Substance: CLARITHROMYCIN
  8. SILDENAFIL. [Concomitant]
     Active Substance: SILDENAFIL
  9. BIKTARVY [Concomitant]
     Active Substance: BICTEGRAVIR SODIUM\EMTRICITABINE\TENOFOVIR ALAFENAMIDE FUMARATE
  10. TIVICAY [Concomitant]
     Active Substance: DOLUTEGRAVIR SODIUM
  11. LITHIUM OROTATE [Concomitant]
     Active Substance: LITHIUM OROTATE
  12. VITAMIN C [Concomitant]
     Active Substance: ASCORBIC ACID
  13. STRIBILD [Suspect]
     Active Substance: COBICISTAT\ELVITEGRAVIR\EMTRICITABINE\TENOFOVIR DISOPROXIL FUMARATE
     Dosage: UNK
     Route: 065
     Dates: start: 202008
  14. DESCOVY [Concomitant]
     Active Substance: EMTRICITABINE\TENOFOVIR ALAFENAMIDE FUMARATE
  15. STRIBILD [Suspect]
     Active Substance: COBICISTAT\ELVITEGRAVIR\EMTRICITABINE\TENOFOVIR DISOPROXIL FUMARATE
     Indication: HIV INFECTION
     Dosage: UNK
     Route: 065
  16. SEROQUEL [Concomitant]
     Active Substance: QUETIAPINE FUMARATE

REACTIONS (10)
  - Arthritis [Not Recovered/Not Resolved]
  - Depression [Unknown]
  - Inflammation [Unknown]
  - Fatigue [Unknown]
  - Weight increased [Unknown]
  - Attention deficit hyperactivity disorder [Unknown]
  - Tenosynovitis stenosans [Unknown]
  - Viral load increased [Unknown]
  - Influenza [Unknown]
  - Plantar fasciitis [Unknown]

NARRATIVE: CASE EVENT DATE: 202012
